FAERS Safety Report 8565002-2 (Version None)
Quarter: 2012Q3

REPORT INFORMATION
  Report Type: 
  Country: None (occurrence: None)
  Receive Date: 20120803
  Receipt Date: 20120730
  Transmission Date: 20120928
  Serious: No
  Sender: FDA-Public Use
  Company Number: US-PFIZER INC-2012184637

PATIENT
  Sex: Male
  Weight: 86.168 kg

DRUGS (3)
  1. LYRICA [Suspect]
     Dosage: 150 MG, 2X/DAY
     Route: 048
     Dates: start: 20120713
  2. LYRICA [Suspect]
     Indication: HERPES ZOSTER
     Dosage: 75 MG, 2X/DAY
     Route: 048
     Dates: start: 20120629, end: 20120712
  3. NORCO [Concomitant]
     Dosage: 7.5/325 MG, UNK

REACTIONS (13)
  - ARTHRALGIA [None]
  - ABDOMINAL PAIN UPPER [None]
  - BALANCE DISORDER [None]
  - URINARY INCONTINENCE [None]
  - DRUG INEFFECTIVE [None]
  - PYREXIA [None]
  - GENERAL PHYSICAL HEALTH DETERIORATION [None]
  - PAIN [None]
  - MALAISE [None]
  - URTICARIA [None]
  - EATING DISORDER [None]
  - DYSSTASIA [None]
  - DIZZINESS [None]
